FAERS Safety Report 6308795-7 (Version None)
Quarter: 2009Q3

REPORT INFORMATION
  Report Type: 
  Country: None (occurrence: None)
  Receive Date: 20090813
  Receipt Date: 20080720
  Transmission Date: 20100115
  Serious: No
  Sender: FDA-Public Use
  Company Number: US-ALLERGAN-0809024US

PATIENT
  Age: 83 Year
  Sex: Female
  Weight: 45.351 kg

DRUGS (2)
  1. COMBIGAN [Suspect]
     Indication: OPEN ANGLE GLAUCOMA
     Dosage: 1 GTT, UNK
     Route: 047
     Dates: start: 20080703, end: 20080718
  2. TIMOLOL MALEATE [Concomitant]
     Dosage: UNK, QAM

REACTIONS (1)
  - OCULAR HYPERAEMIA [None]
